FAERS Safety Report 5945130-8 (Version None)
Quarter: 2008Q4

REPORT INFORMATION
  Report Type: 
  Country: None (occurrence: None)
  Receive Date: 20081107
  Receipt Date: 20081103
  Transmission Date: 20090506
  Serious: Yes (Other)
  Sender: FDA-Public Use
  Company Number: A0752269A

PATIENT
  Age: 61 Year
  Sex: Female

DRUGS (5)
  1. VALTREX [Suspect]
     Indication: ANTIVIRAL PROPHYLAXIS
     Dosage: 1G SINGLE DOSE
     Route: 048
     Dates: start: 20080901, end: 20080901
  2. ESTROGENIC SUBSTANCE [Concomitant]
  3. PROGESTIN INJ [Concomitant]
  4. ACIPHEX [Concomitant]
  5. VITAMIN B-12 [Concomitant]

REACTIONS (1)
  - HALLUCINATION [None]
